FAERS Safety Report 9900783 (Version 1)
Quarter: 2014Q1

REPORT INFORMATION
  Report Type: Spontaneous
  Country: FR (occurrence: FR)
  Receive Date: 20140217
  Receipt Date: 20140217
  Transmission Date: 20141002
  Serious: Yes (Other)
  Sender: FDA-Public Use
  Company Number: FR-ROCHE-1346661

PATIENT
  Age: 65 Year
  Sex: Female

DRUGS (3)
  1. XELODA [Suspect]
     Indication: BREAST CANCER
     Route: 065
     Dates: start: 201207, end: 201312
  2. HERCEPTIN [Suspect]
     Indication: BREAST CANCER
     Route: 065
  3. TAXOL [Concomitant]

REACTIONS (6)
  - Nerve degeneration [Not Recovered/Not Resolved]
  - Ocular hypertension [Not Recovered/Not Resolved]
  - Mydriasis [Not Recovered/Not Resolved]
  - Hypertension [Not Recovered/Not Resolved]
  - Headache [Unknown]
  - Palmar-plantar erythrodysaesthesia syndrome [Not Recovered/Not Resolved]
